FAERS Safety Report 9143527 (Version 1)
Quarter: 2013Q1

REPORT INFORMATION
  Report Type: Spontaneous
  Country: US (occurrence: US)
  Receive Date: 20130306
  Receipt Date: 20130306
  Transmission Date: 20140127
  Serious: Yes (Hospitalization)
  Sender: FDA-Public Use
  Company Number: PHEH2013US005199

PATIENT
  Sex: Female

DRUGS (2)
  1. ARCAPTA [Suspect]
  2. PREDNISONE [Suspect]

REACTIONS (2)
  - Malaise [Unknown]
  - Throat irritation [Unknown]
